FAERS Safety Report 12323738 (Version 3)
Quarter: 2017Q3

REPORT INFORMATION
  Report Type: Spontaneous
  Country: US (occurrence: US)
  Receive Date: 20160502
  Receipt Date: 20170726
  Transmission Date: 20171127
  Serious: Yes (Other)
  Sender: FDA-Public Use
  Company Number: US-BAYER-2016-079588

PATIENT
  Age: 52 Year
  Sex: Female

DRUGS (2)
  1. MIRENA [Suspect]
     Active Substance: LEVONORGESTREL
     Indication: MENORRHAGIA
     Dosage: 20 MCG/24HR, CONT
     Route: 015
     Dates: start: 20070108, end: 20160418
  2. MIRENA [Suspect]
     Active Substance: LEVONORGESTREL
     Indication: ABDOMINAL PAIN LOWER

REACTIONS (8)
  - Drug withdrawal headache [Recovered/Resolved]
  - Device use issue [Recovered/Resolved]
  - Hypomenorrhoea [Unknown]
  - Post procedural haemorrhage [Recovered/Resolved]
  - Abdominal pain lower [Not Recovered/Not Resolved]
  - Weight increased [Recovered/Resolved]
  - Metrorrhagia [Unknown]
  - Amenorrhoea [Unknown]

NARRATIVE: CASE EVENT DATE: 2007
